FAERS Safety Report 9241810 (Version 1)
Quarter: 2013Q2

REPORT INFORMATION
  Report Type: Report from Study
  Country: KR (occurrence: KR)
  Receive Date: 20130419
  Receipt Date: 20130419
  Transmission Date: 20140414
  Serious: Yes (Other)
  Sender: FDA-Public Use
  Company Number: PHHY2013KR036519

PATIENT
  Sex: Male

DRUGS (1)
  1. GLIVEC [Suspect]
     Indication: CHRONIC MYELOID LEUKAEMIA
     Dosage: 400 MG, QD
     Route: 048
     Dates: start: 20060908

REACTIONS (6)
  - Monoplegia [Unknown]
  - Injury [Unknown]
  - Limb discomfort [Recovering/Resolving]
  - Musculoskeletal discomfort [Unknown]
  - Muscle spasms [Unknown]
  - Back pain [Unknown]
